FAERS Safety Report 6831190-9 (Version None)
Quarter: 2010Q3

REPORT INFORMATION
  Report Type: 
  Country: None (occurrence: None)
  Receive Date: 20100712
  Receipt Date: 20100629
  Transmission Date: 20110219
  Serious: No
  Sender: FDA-Public Use
  Company Number: US-JNJFOC-20100700505

PATIENT
  Sex: Female
  Weight: 68.95 kg

DRUGS (9)
  1. FENTANYL-100 [Suspect]
     Indication: CARPAL TUNNEL SYNDROME
     Route: 062
  2. FENTANYL-100 [Suspect]
     Indication: NERVE INJURY
     Route: 062
  3. FENTANYL-100 [Suspect]
     Indication: PAIN
     Route: 062
  4. DURAGESIC-100 [Suspect]
     Indication: CARPAL TUNNEL SYNDROME
     Dosage: NDC 50458-0092-05
     Route: 062
  5. DURAGESIC-100 [Suspect]
     Indication: NERVE INJURY
     Dosage: NDC 50458-0092-05
     Route: 062
  6. DURAGESIC-100 [Suspect]
     Indication: PAIN
     Dosage: NDC 50458-0092-05
     Route: 062
  7. NEURONTIN [Concomitant]
     Indication: NERVE INJURY
     Dosage: 600MG+200MG IN AM AND 200MG IN PM
     Route: 048
  8. CITALOPRAM [Concomitant]
     Indication: DEPRESSION
     Route: 048
  9. CITALOPRAM [Concomitant]
     Indication: ANXIETY
     Route: 048

REACTIONS (3)
  - APPLICATION SITE ERYTHEMA [None]
  - PAIN [None]
  - WRONG TECHNIQUE IN DRUG USAGE PROCESS [None]
